FAERS Safety Report 7178865-2 (Version None)
Quarter: 2010Q4

REPORT INFORMATION
  Report Type: 
  Country: None (occurrence: None)
  Receive Date: 20101221
  Receipt Date: 20101210
  Transmission Date: 20110411
  Serious: No
  Sender: FDA-Public Use
  Company Number: US-JNJFOC-20101204881

PATIENT
  Sex: Male
  Weight: 110.86 kg

DRUGS (14)
  1. FENTANYL-100 [Suspect]
     Indication: NECK PAIN
     Route: 062
  2. FENTANYL-100 [Suspect]
     Indication: BACK PAIN
     Route: 062
  3. FENTANYL-100 [Suspect]
     Route: 062
  4. FENTANYL-100 [Suspect]
     Route: 062
  5. FENTANYL-100 [Suspect]
     Route: 062
  6. FENTANYL-100 [Suspect]
     Route: 062
  7. FENTANYL-100 [Suspect]
     Route: 062
  8. FENTANYL-100 [Suspect]
     Route: 062
  9. PERCOCET [Concomitant]
     Indication: BREAKTHROUGH PAIN
     Dosage: 2-10
     Route: 048
  10. AMITRIPTYLINE [Concomitant]
     Indication: SLEEP DISORDER
     Dosage: 4 PER NIGHT
     Route: 048
  11. AMITRIPTYLINE [Concomitant]
     Indication: PAIN
     Dosage: 4 PER NIGHT
     Route: 048
  12. VALIUM [Concomitant]
     Indication: FEELING OF RELAXATION
     Route: 048
  13. CYMBALTA [Concomitant]
     Indication: DEPRESSION
     Route: 048
  14. ZOCOR [Concomitant]
     Indication: BLOOD CHOLESTEROL
     Dosage: AT NIGHT
     Route: 048

REACTIONS (5)
  - APPLICATION SITE REACTION [None]
  - DRUG DOSE OMISSION [None]
  - DRUG INEFFECTIVE [None]
  - INAPPROPRIATE SCHEDULE OF DRUG ADMINISTRATION [None]
  - PAIN [None]
